FAERS Safety Report 15260071 (Version 1)
Quarter: 2018Q3

REPORT INFORMATION
  Report Type: Spontaneous
  Country: US (occurrence: US)
  Receive Date: 20180809
  Receipt Date: 20180809
  Transmission Date: 20181010
  Serious: Yes (Other)
  Sender: FDA-Public Use
  Company Number: PHEH2018US032246

PATIENT
  Sex: Female

DRUGS (2)
  1. IBUPROFEN. [Suspect]
     Active Substance: IBUPROFEN
     Indication: ANKYLOSING SPONDYLITIS
     Dosage: 800 MG, TID
     Route: 048
  2. GABAPENTIN. [Suspect]
     Active Substance: GABAPENTIN
     Indication: ANKYLOSING SPONDYLITIS
     Dosage: 100 MG, TID
     Route: 048

REACTIONS (2)
  - Pain [Unknown]
  - Ankylosing spondylitis [Unknown]
